FAERS Safety Report 6558636 (Version 5)
Quarter: 2012Q4

REPORT INFORMATION
  Report Type: 
  Country: US (occurrence: US)
  Receive Date: 20080222
  Receipt Date: 20121127
  Transmission Date: 20130627
  Serious: Yes (Hospitalization)
  Sender: FDA-Public Use
  Company Number: US-BAYER-200814301NA

PATIENT
  Age: 33 Year
  Sex: Female
  Weight: 61 kg

DRUGS (5)
  1. YAZ [Suspect]
     Dosage: 1 DF (Daily Dose), QD,
     Dates: start: 200801, end: 20080209
  2. YASMIN [Suspect]
  3. TRAMADOL HYDROCHLORIDE [Concomitant]
     Dosage: 50 mg, PRN every 4 hours
     Route: 048
  4. ZOFRAN [Concomitant]
  5. NICOTINE PATCH [Concomitant]

REACTIONS (3)
  - Pulmonary embolism [None]
  - Pain [None]
  - Dyspnoea [None]
